FAERS Safety Report 9472485 (Version 1)
Quarter: 2013Q3

REPORT INFORMATION
  Report Type: Spontaneous
  Country: US (occurrence: None)
  Receive Date: 20130821
  Receipt Date: 20130821
  Transmission Date: 20140515
  Serious: Yes (Hospitalization)
  Sender: FDA-Public Use
  Company Number: None

PATIENT
  Age: 82 Year
  Sex: Female
  Weight: 82 kg

DRUGS (10)
  1. XARELTO 20MG JANSSEN [Suspect]
     Indication: ATRIAL FIBRILLATION
     Dates: start: 20130810, end: 20130814
  2. ASPIRIN [Concomitant]
  3. FUROSEMIDE [Concomitant]
  4. LEVOTHYROXINE [Concomitant]
  5. METOPROLOL TARTRATE [Concomitant]
  6. MULTIVITAMIN [Concomitant]
  7. POTASSIUM CHLORIDE [Concomitant]
  8. RANITIDINE [Concomitant]
  9. CRESTOR [Concomitant]
  10. VALSARTAN/ HYDROCHLOROTHIAZIDE [Concomitant]

REACTIONS (5)
  - Asthenia [None]
  - Dizziness [None]
  - Haemoglobin decreased [None]
  - Haematocrit decreased [None]
  - Melaena [None]
